FAERS Safety Report 7903656-1 (Version None)
Quarter: 2011Q4

REPORT INFORMATION
  Report Type: 
  Country: None (occurrence: None)
  Receive Date: 20111107
  Receipt Date: 20111020
  Transmission Date: 20120403
  Serious: Yes (Disabling)
  Sender: FDA-Public Use
  Company Number: 1086045

PATIENT
  Age: 19 Month
  Sex: Female

DRUGS (8)
  1. THIOTEPA [Suspect]
     Indication: BRAIN NEOPLASM MALIGNANT
     Dosage: 10 MG/KG/DAY
  2. (THERAPEUTIC RADIOPHARMACEUTICALS) [Suspect]
     Indication: BRAIN NEOPLASM MALIGNANT
     Dosage: 10.8 GY IN 6 FRACTIONS, 45 GY IN 25 DAILY FRACTIONS
  3. CYCLOPHOSPHAMIDE [Suspect]
     Indication: BRAIN NEOPLASM MALIGNANT
     Dosage: 60 MG/KG/DAY
  4. CARBOPLATIN [Suspect]
     Indication: BRAIN NEOPLASM MALIGNANT
     Dosage: 17 MG/KG/DAY
  5. METHOTREXATE [Suspect]
     Indication: BRAIN NEOPLASM MALIGNANT
     Dosage: 8 GM/M^2
  6. VINCRISTINE SULFATE [Suspect]
     Indication: BRAIN NEOPLASM MALIGNANT
     Dosage: 0.05 MG/KG/DAY
  7. CISPLATIN [Suspect]
     Indication: BRAIN NEOPLASM MALIGNANT
     Dosage: 3.5 MG/KG
  8. ETOPOSIDE [Suspect]
     Indication: BRAIN NEOPLASM MALIGNANT
     Dosage: 2.5 MG/KG/DAY

REACTIONS (10)
  - SEPSIS [None]
  - IMMUNOSUPPRESSION [None]
  - COORDINATION ABNORMAL [None]
  - INFLAMMATION [None]
  - LEUKOENCEPHALOPATHY [None]
  - STEM CELL TRANSPLANT [None]
  - DEAFNESS [None]
  - SPEECH DISORDER [None]
  - HYPOTONIA [None]
  - BLINDNESS [None]
